FAERS Safety Report 24183073 (Version 1)
Quarter: 2024Q3

REPORT INFORMATION
  Report Type: Spontaneous
  Country: US (occurrence: US)
  Receive Date: 20240807
  Receipt Date: 20240807
  Transmission Date: 20241016
  Serious: Yes (Life-Threatening, Hospitalization, Other)
  Sender: GLAND PHARMA
  Company Number: US-GLANDPHARMA-US-2024GLNLIT00589

PATIENT
  Age: 7 Decade
  Sex: Male

DRUGS (2)
  1. DEXAMETHASONE SODIUM PHOSPHATE [Suspect]
     Active Substance: DEXAMETHASONE PHOSPHATE\DEXAMETHASONE SODIUM PHOSPHATE
     Indication: Cervical radiculopathy
     Route: 065
  2. SODIUM CHLORIDE [Concomitant]
     Active Substance: SODIUM CHLORIDE
     Indication: Cervical radiculopathy
     Route: 065

REACTIONS (2)
  - Septic shock [Unknown]
  - Product use in unapproved indication [Unknown]
